FAERS Safety Report 8283680-2 (Version None)
Quarter: 2012Q2

REPORT INFORMATION
  Report Type: 
  Country: None (occurrence: None)
  Receive Date: 20120413
  Receipt Date: 20120406
  Transmission Date: 20120825
  Serious: Yes (Hospitalization)
  Sender: FDA-Public Use
  Company Number: IT-PFIZER INC-2012088751

PATIENT
  Age: 63 Year
  Sex: Male

DRUGS (1)
  1. CAVERJECT [Suspect]
     Indication: ERECTILE DYSFUNCTION
     Dosage: 10 UG, MONTHLY
     Route: 017
     Dates: start: 20071001, end: 20120312

REACTIONS (1)
  - VENTRICULAR EXTRASYSTOLES [None]
